FAERS Safety Report 5085005-2 (Version None)
Quarter: 2006Q3

REPORT INFORMATION
  Report Type: 
  Country: None (occurrence: None)
  Receive Date: 20060815
  Receipt Date: 20060804
  Transmission Date: 20061208
  Serious: Yes (Other)
  Sender: FDA-Public Use
  Company Number: CIP06001807

PATIENT
  Age: 54 Year
  Sex: Female

DRUGS (4)
  1. ACTONEL [Suspect]
     Dosage: 35 MG ONCE WEEKLY, ORAL
     Route: 048
     Dates: start: 20000101
  2. AMBIEN [Concomitant]
  3. CALCIUM (CALCIUMS) [Concomitant]
  4. MULTI-VIT (VITAMONS NOS) [Concomitant]

REACTIONS (4)
  - GINGIVAL INFECTION [None]
  - IMPAIRED HEALING [None]
  - OSTEONECROSIS [None]
  - TOOTH EXTRACTION [None]
